FAERS Safety Report 9680020 (Version 1)
Quarter: 2013Q4

REPORT INFORMATION
  Report Type: Spontaneous
  Country: US (occurrence: US)
  Receive Date: 20131110
  Receipt Date: 20131110
  Transmission Date: 20140711
  Serious: No
  Sender: FDA-Public Use
  Company Number: US-009507513-1311USA000653

PATIENT
  Age: 18 Year
  Sex: Female

DRUGS (2)
  1. NEXPLANON [Suspect]
     Dosage: ONE ROD ONCE, THE SECOND ROD
     Route: 059
     Dates: start: 20131031
  2. NEXPLANON [Suspect]
     Dosage: THE FIRST ROD
     Route: 059

REACTIONS (1)
  - Device deployment issue [Unknown]
